FAERS Safety Report 9266729 (Version 2)
Quarter: 2013Q2

REPORT INFORMATION
  Report Type: Spontaneous
  Country: US (occurrence: US)
  Receive Date: 20130502
  Receipt Date: 20130610
  Transmission Date: 20140414
  Serious: Yes (Other)
  Sender: FDA-Public Use
  Company Number: US-NOVOPROD-376702

PATIENT
  Age: 6 Month
  Sex: Female
  Weight: 5.3 kg

DRUGS (5)
  1. NORDITROPIN FLEXPRO 3.3 MG/ML [Suspect]
     Indication: GROWTH HORMONE DEFICIENCY
     Dosage: 0.2 MG, QD FOR 6 DAYS
     Route: 058
     Dates: start: 20130416, end: 20130417
  2. NORDITROPIN FLEXPRO 3.3 MG/ML [Suspect]
     Dosage: 0.05 MG, EVERY DAY FOR 6 DAYS
     Route: 058
     Dates: start: 20130423
  3. SOLU-CORTEF [Concomitant]
     Indication: ADRENAL INSUFFICIENCY
     Dosage: 1 MG, QD
     Route: 030
     Dates: end: 20130417
  4. SOLU-CORTEF [Concomitant]
     Dosage: 3 MG, QD
     Route: 030
     Dates: start: 20130419, end: 20130421
  5. SOLU-CORTEF [Concomitant]
     Dosage: 1 MG, QD
     Route: 030
     Dates: start: 20130422

REACTIONS (2)
  - Adrenocortical insufficiency acute [Recovered/Resolved]
  - Gastroenteritis viral [Unknown]
